FAERS Safety Report 5792910-8 (Version None)
Quarter: 2008Q2

REPORT INFORMATION
  Report Type: 
  Country: None (occurrence: None)
  Receive Date: 20080627
  Receipt Date: 20071016
  Transmission Date: 20081010
  Serious: No
  Sender: FDA-Public Use
  Company Number: US-BAYER-US-2007-039531

PATIENT
  Age: 57 Year
  Sex: Male
  Weight: 91 kg

DRUGS (1)
  1. ULTRAVIST 300 [Suspect]
     Indication: COMPUTERISED TOMOGRAM
     Dosage: UNIT DOSE: 95 ML
     Route: 042
     Dates: start: 20071009, end: 20071009

REACTIONS (5)
  - DYSPNOEA [None]
  - ERYTHEMA [None]
  - OCULAR HYPERAEMIA [None]
  - THROAT TIGHTNESS [None]
  - VOMITING [None]
